FAERS Safety Report 6919003-8 (Version None)
Quarter: 2010Q3

REPORT INFORMATION
  Report Type: 
  Country: None (occurrence: None)
  Receive Date: 20100811
  Receipt Date: 20100728
  Transmission Date: 20110219
  Serious: Yes (Death)
  Sender: FDA-Public Use
  Company Number: JP-ELI_LILLY_AND_COMPANY-JP201007005094

PATIENT
  Age: 76 Year
  Sex: Male

DRUGS (8)
  1. CYMBALTA [Suspect]
     Indication: DIABETIC NEUROPATHY
     Dosage: 20 MG, DAILY (1/D)
     Route: 048
     Dates: start: 20100525, end: 20100705
  2. CYMBALTA [Suspect]
     Dosage: 40 MG, DAILY (1/D)
     Route: 048
     Dates: start: 20100706
  3. GLYBURIDE [Concomitant]
     Dosage: 6.25 MG, EACH MORNING
  4. GLYBURIDE [Concomitant]
     Dosage: 3.75 MG, EACH EVENING
  5. BASEN [Concomitant]
     Dosage: 1 D/F, UNK
     Route: 048
  6. MICARDIS [Concomitant]
     Indication: HYPERTENSION
     Dosage: 1 D/F, UNK
     Route: 048
  7. MAGNESIUM OXIDE [Concomitant]
     Dosage: 1 G, UNK
  8. HUMALOG [Concomitant]
     Dosage: 8 IU, UNK

REACTIONS (2)
  - OFF LABEL USE [None]
  - SUDDEN DEATH [None]
